FAERS Safety Report 6247677-6 (Version None)
Quarter: 2009Q2

REPORT INFORMATION
  Report Type: 
  Country: None (occurrence: None)
  Receive Date: 20090626
  Receipt Date: 20090614
  Transmission Date: 20091009
  Serious: Yes (Hospitalization)
  Sender: FDA-Public Use
  Company Number: US-ELI_LILLY_AND_COMPANY-US200903003044

PATIENT
  Sex: Female

DRUGS (3)
  1. CYMBALTA [Suspect]
     Dosage: 1 D/F, UNK
     Route: 048
     Dates: end: 20090101
  2. BETASERON /05983301/ [Concomitant]
     Indication: MULTIPLE SCLEROSIS
     Dosage: 8 MIU, QOD
     Route: 058
     Dates: start: 20081119, end: 20090213
  3. BETASERON /05983301/ [Concomitant]
     Dosage: 2 MIU, QOD
     Route: 058
     Dates: start: 20090416

REACTIONS (4)
  - ABDOMINAL PAIN [None]
  - CHOLELITHIASIS [None]
  - HEPATIC ENZYME ABNORMAL [None]
  - LIVER DISORDER [None]
